FAERS Safety Report 7141045-0 (Version None)
Quarter: 2010Q4

REPORT INFORMATION
  Report Type: 
  Country: None (occurrence: None)
  Receive Date: 20101122
  Receipt Date: 20101110
  Transmission Date: 20110411
  Serious: Yes (Hospitalization)
  Sender: FDA-Public Use
  Company Number: 021917

PATIENT
  Sex: Male

DRUGS (1)
  1. LEVETIRACETAM [Suspect]
     Indication: GENERALISED NON-CONVULSIVE EPILEPSY
     Dosage: (800 MG ORAL)
     Route: 048
     Dates: start: 20100201, end: 20101004

REACTIONS (1)
  - THROMBOCYTOPENIA [None]
